FAERS Safety Report 20660789 (Version 5)
Quarter: 2022Q3

REPORT INFORMATION
  Report Type: Report from Study
  Country: CA (occurrence: CA)
  Receive Date: 20220331
  Receipt Date: 20220913
  Transmission Date: 20221027
  Serious: Yes (Hospitalization, Other)
  Sender: FDA-Public Use
  Company Number: CA-TAKEDA-2022TUS021531

PATIENT
  Age: 73 Year
  Sex: Male
  Weight: 66 kg

DRUGS (13)
  1. TEDUGLUTIDE [Suspect]
     Active Substance: TEDUGLUTIDE
     Indication: Short-bowel syndrome
     Dosage: 3.81 MILLIGRAM, QD
     Route: 058
     Dates: start: 20160301
  2. TEDUGLUTIDE [Suspect]
     Active Substance: TEDUGLUTIDE
     Indication: Short-bowel syndrome
     Dosage: 3.81 MILLIGRAM, QD
     Route: 058
     Dates: start: 20160301
  3. TEDUGLUTIDE [Suspect]
     Active Substance: TEDUGLUTIDE
     Indication: Short-bowel syndrome
     Dosage: 3.81 MILLIGRAM, QD
     Route: 058
     Dates: start: 20160301
  4. TEDUGLUTIDE [Suspect]
     Active Substance: TEDUGLUTIDE
     Indication: Short-bowel syndrome
     Dosage: 3.81 MILLIGRAM, QD
     Route: 058
     Dates: start: 20160301
  5. CALCIUM CITRATE [Concomitant]
     Active Substance: CALCIUM CITRATE
     Dosage: UNK, BID
     Route: 065
  6. VITAMIN D3 [Concomitant]
     Active Substance: CHOLECALCIFEROL
     Dosage: UNK, MONTHLY
     Route: 065
  7. VITAMIN B12 [Concomitant]
     Active Substance: CYANOCOBALAMIN
     Indication: Vitamin B12 decreased
     Dosage: UNK, MONTHLY
     Route: 050
  8. MAGNESIUM [Concomitant]
     Active Substance: MAGNESIUM
     Dosage: UNK UNK, QD
     Route: 065
  9. GLUCOSAMINE [Concomitant]
     Active Substance: GLUCOSAMINE
     Dosage: UNK
     Route: 065
     Dates: start: 201904
  10. TPN [Concomitant]
     Active Substance: AMINO ACIDS\DEXTROSE\ELECTROLYTES NOS\SOYBEAN OIL
     Dosage: UNK
     Route: 065
     Dates: end: 20170428
  11. VITAMIN D NOS [Concomitant]
     Active Substance: VITAMIN D NOS
     Dosage: 5000 INTERNATIONAL UNITS, QID
     Route: 065
  12. IRON [Concomitant]
     Active Substance: IRON
     Dosage: UNK, QD
     Route: 065
  13. PROTEIN [Concomitant]
     Active Substance: PROTEIN
     Dosage: UNK, QD

REACTIONS (14)
  - Cholecystitis infective [Unknown]
  - Dehydration [Unknown]
  - Pancreatic disorder [Unknown]
  - Gallbladder neoplasm [Not Recovered/Not Resolved]
  - Vitamin B12 decreased [Unknown]
  - Biliary colic [Recovering/Resolving]
  - Muscle spasms [Recovering/Resolving]
  - Weight decreased [Unknown]
  - Herpes zoster [Unknown]
  - Blood iron decreased [Not Recovered/Not Resolved]
  - Laryngitis [Not Recovered/Not Resolved]
  - Headache [Unknown]
  - Nasopharyngitis [Not Recovered/Not Resolved]
  - Product dose omission issue [Unknown]

NARRATIVE: CASE EVENT DATE: 20200801
